FAERS Safety Report 4661287-3 (Version None)
Quarter: 2005Q2

REPORT INFORMATION
  Report Type: 
  Country: None (occurrence: None)
  Receive Date: 20050513
  Receipt Date: 20050503
  Transmission Date: 20051028
  Serious: Yes (Hospitalization)
  Sender: FDA-Public Use
  Company Number: DE-BRISTOL-MYERS SQUIBB COMPANY-12954475

PATIENT
  Age: 73 Year
  Sex: Female
  Weight: 70 kg

DRUGS (15)
  1. CISPLATIN [Suspect]
     Indication: SMALL CELL LUNG CANCER STAGE UNSPECIFIED
     Route: 042
     Dates: start: 20050323
  2. ETOPOSIDE [Suspect]
     Indication: SMALL CELL LUNG CANCER STAGE UNSPECIFIED
     Route: 042
     Dates: start: 20050323
  3. HYZAAR [Concomitant]
     Route: 048
  4. LOSARTAN POTASSIUM [Concomitant]
     Route: 048
  5. METOPROLOL TARTRATE [Concomitant]
     Route: 048
  6. ZOPICLONE [Concomitant]
     Route: 048
     Dates: start: 20050311
  7. TORSEMIDE [Concomitant]
     Route: 048
     Dates: start: 20050311, end: 20050326
  8. ESOMEPRAZOLE [Concomitant]
     Route: 048
     Dates: start: 20050326, end: 20050330
  9. MAGALDRATE [Concomitant]
     Route: 048
     Dates: start: 20050325, end: 20050325
  10. METOCLOPRAMIDE HCL [Concomitant]
     Route: 048
     Dates: start: 20050325, end: 20050325
  11. NITROGLYCERIN [Concomitant]
     Route: 048
     Dates: start: 20050323, end: 20050323
  12. HEPARIN SODIUM [Concomitant]
     Route: 058
     Dates: start: 20050326, end: 20050330
  13. GRANISETRON HCL [Concomitant]
     Route: 042
     Dates: start: 20050323, end: 20050325
  14. DEXAMETHASONE [Concomitant]
     Route: 042
     Dates: start: 20050323, end: 20050323
  15. MAGNESIUM [Concomitant]
     Route: 048
     Dates: start: 20050323, end: 20050325

REACTIONS (1)
  - LOSS OF CONSCIOUSNESS [None]
